FAERS Safety Report 16786556 (Version 13)
Quarter: 2021Q4

REPORT INFORMATION
  Report Type: Spontaneous
  Country: IN (occurrence: IN)
  Receive Date: 20190909
  Receipt Date: 20211118
  Transmission Date: 20220303
  Serious: Yes (Other)
  Sender: FDA-Public Use
  Company Number: IN-PFIZER INC-2019096706

PATIENT
  Age: 78 Year
  Sex: Female

DRUGS (11)
  1. PALBOCICLIB [Suspect]
     Active Substance: PALBOCICLIB
     Indication: Breast cancer metastatic
     Dosage: 125 MG, CYCLIC (ONCE A DAY)
     Route: 048
     Dates: start: 20171111
  2. PALBOCICLIB [Suspect]
     Active Substance: PALBOCICLIB
     Dosage: 125 MG, CYCLIC (ONCE A DAY)
     Route: 048
     Dates: start: 20200217
  3. PALBOCICLIB [Suspect]
     Active Substance: PALBOCICLIB
     Dosage: 125 MG, CYCLIC (ONCE A DAY, D1-D21 O 28 DAYS I.E 21 DAYS ON AND THEN 7 DAYS OFF THEN RESTART)
     Route: 048
     Dates: start: 20210715
  4. FEMARA [Concomitant]
     Active Substance: LETROZOLE
     Indication: Breast cancer metastatic
     Dosage: 2.5 MG, 1X/DAY
     Route: 048
     Dates: start: 20200214
  5. FEMARA [Concomitant]
     Active Substance: LETROZOLE
     Dosage: 2.5 UNK FOR 90 DAYS
     Route: 048
     Dates: start: 20210715
  6. CALCIUM CARBONATE\CHOLECALCIFEROL [Concomitant]
     Active Substance: CALCIUM CARBONATE\CHOLECALCIFEROL
     Dosage: UNK, 1X/DAY
     Route: 048
  7. CALCIUM CARBONATE\CHOLECALCIFEROL [Concomitant]
     Active Substance: CALCIUM CARBONATE\CHOLECALCIFEROL
     Dosage: 1*15 FOR 90 DAYS
     Dates: start: 20210715
  8. CALCIROL [Concomitant]
     Dosage: UNK UNK, MONTHLY
     Route: 048
  9. CALCIROL [Concomitant]
     Dosage: 1 G, ONCE A MONTH FOR 90 DAYS.
     Dates: start: 20210715
  10. ZOLEDRONIC ACID [Concomitant]
     Active Substance: ZOLEDRONIC ACID
     Dosage: UNK (ONCE EVERY 6 MONTHS)
     Route: 042
     Dates: start: 20200214
  11. ZOLEDRONIC ACID [Concomitant]
     Active Substance: ZOLEDRONIC ACID
     Dosage: 4 MG. ONCE EVERY 6 MONTHS
     Route: 041
     Dates: start: 20210715

REACTIONS (8)
  - Nephrolithiasis [Unknown]
  - Cataract [Unknown]
  - Escherichia urinary tract infection [Unknown]
  - Ureterolithiasis [Unknown]
  - Pain [Unknown]
  - Dysuria [Unknown]
  - Glycosylated haemoglobin increased [Unknown]
  - COVID-19 [Unknown]

NARRATIVE: CASE EVENT DATE: 20210401
